FAERS Safety Report 13269659 (Version 1)
Quarter: 2017Q1

REPORT INFORMATION
  Report Type: Spontaneous
  Country: GB (occurrence: GB)
  Receive Date: 20170224
  Receipt Date: 20170224
  Transmission Date: 20170428
  Serious: Yes (Other)
  Sender: FDA-Public Use
  Company Number: PHHY2016GB177521

PATIENT
  Age: 55 Year
  Sex: Female

DRUGS (1)
  1. COSENTYX [Suspect]
     Active Substance: SECUKINUMAB
     Indication: PSORIASIS
     Dosage: UNK
     Route: 058
     Dates: start: 20161120, end: 20161220

REACTIONS (6)
  - Oral pain [Unknown]
  - Oropharyngeal blistering [Unknown]
  - Oral mucosal blistering [Unknown]
  - Mouth ulceration [Unknown]
  - Malaise [Unknown]
  - Oral disorder [Unknown]

NARRATIVE: CASE EVENT DATE: 20161220
